FAERS Safety Report 6726537-8 (Version None)
Quarter: 2010Q2

REPORT INFORMATION
  Report Type: 
  Country: None (occurrence: None)
  Receive Date: 20100514
  Receipt Date: 20100120
  Transmission Date: 20101027
  Serious: Yes (Death, Other)
  Sender: FDA-Public Use
  Company Number: US-BRISTOL-MYERS SQUIBB COMPANY-14937858

PATIENT
  Age: 56 Year
  Sex: Female
  Weight: 89 kg

DRUGS (12)
  1. IXEMPRA KIT [Suspect]
     Indication: BREAST CANCER
     Dosage: INFUSION :1
     Route: 042
     Dates: start: 20080505
  2. NAVELBINE [Suspect]
  3. XELODA [Suspect]
     Indication: BREAST CANCER
     Dosage: 10 DAY CYCLE
     Dates: start: 20070917
  4. VESICARE [Concomitant]
  5. NEXIUM [Concomitant]
  6. ZYRTEC [Concomitant]
  7. LEXAPRO [Concomitant]
  8. VITAMIN B6 [Concomitant]
  9. ALOXI [Concomitant]
     Indication: PREMEDICATION
     Route: 042
  10. DECADRON [Concomitant]
     Indication: PREMEDICATION
     Route: 042
  11. TAGAMET [Concomitant]
     Indication: PREMEDICATION
     Route: 042
  12. BENADRYL [Concomitant]
     Indication: PREMEDICATION
     Route: 042

REACTIONS (5)
  - BONE PAIN [None]
  - HYPOAESTHESIA [None]
  - MALIGNANT NEOPLASM PROGRESSION [None]
  - PARAESTHESIA [None]
  - RASH [None]
